FAERS Safety Report 6679721-6 (Version None)
Quarter: 2010Q2

REPORT INFORMATION
  Report Type: 
  Country: None (occurrence: None)
  Receive Date: 20100409
  Receipt Date: 20090722
  Transmission Date: 20101027
  Serious: No
  Sender: FDA-Public Use
  Company Number: 2009-00513

PATIENT
  Age: 79 Year
  Sex: Female
  Weight: 63.5036 kg

DRUGS (5)
  1. ZICAM COLD REMEDY ORAL MIST [Suspect]
     Dosage: TID-QID - LESS THAN A WK
     Dates: start: 20090403
  2. ZOCOR [Concomitant]
  3. NORVASC [Concomitant]
  4. CENTRUM MULTIVITAMIN [Concomitant]
  5. GLUCOSAMINE WITH CHONDROITIN [Concomitant]

REACTIONS (2)
  - AGEUSIA [None]
  - ANOSMIA [None]
